FAERS Safety Report 4426874-6 (Version None)
Quarter: 2004Q3

REPORT INFORMATION
  Report Type: 
  Country: None (occurrence: None)
  Receive Date: 20040811
  Receipt Date: 20040723
  Transmission Date: 20050211
  Serious: Yes (Hospitalization)
  Sender: FDA-Public Use
  Company Number: EWC040740070

PATIENT
  Age: 1 Day

DRUGS (2)
  1. OLANZAPINE [Suspect]
  2. DEPAKENE [Concomitant]

REACTIONS (10)
  - AMNIOCENTESIS ABNORMAL [None]
  - BLOOD CREATINE PHOSPHOKINASE INCREASED [None]
  - DRUG EXPOSURE DURING PREGNANCY [None]
  - HYPERAESTHESIA [None]
  - HYPOGLYCAEMIA NEONATAL [None]
  - LABORATORY TEST ABNORMAL [None]
  - LARGE FOR DATES BABY [None]
  - NEONATAL DISORDER [None]
  - NEONATAL PNEUMONIA [None]
  - TREMOR NEONATAL [None]
